FAERS Safety Report 17947582 (Version 1)
Quarter: 2020Q2

REPORT INFORMATION
  Report Type: Spontaneous
  Country: JP (occurrence: JP)
  Receive Date: 20200626
  Receipt Date: 20200626
  Transmission Date: 20200714
  Serious: Yes (Hospitalization)
  Sender: FDA-Public Use
  Company Number: JP-STRIDES ARCOLAB LIMITED-2020SP007341

PATIENT
  Age: 69 Year
  Sex: Female

DRUGS (8)
  1. LEVODOPA [Suspect]
     Active Substance: LEVODOPA
     Dosage: UNK, FAST INFUSION
     Route: 065
  2. LEVODOPA [Suspect]
     Active Substance: LEVODOPA
     Dosage: 35 MILLIGRAM, TID, INFUSION
     Route: 065
  3. AMANTADINE HYDROCHLORIDE. [Suspect]
     Active Substance: AMANTADINE HYDROCHLORIDE
     Indication: PARKINSON^S DISEASE
     Dosage: 150 MILLIGRAM
     Route: 065
     Dates: start: 2018
  4. LEVODOPA/CARBIDOPA [Suspect]
     Active Substance: CARBIDOPA\LEVODOPA
     Dosage: 58 MG/H LEVODOPA AND 13.427 MG/H CARBIDOPA
     Route: 065
  5. PRAMIPEXOLE DIHYDROCHLORIDE. [Suspect]
     Active Substance: PRAMIPEXOLE DIHYDROCHLORIDE
     Indication: PARKINSON^S DISEASE
     Dosage: 1.875 MILLIGRAM, PER DAY
     Route: 065
     Dates: start: 2018, end: 2019
  6. LEVODOPA [Suspect]
     Active Substance: LEVODOPA
     Indication: PARKINSON^S DISEASE
     Dosage: 700 MILLIGRAM, 14 TIMES PER DAY
     Route: 065
     Dates: start: 2018, end: 2019
  7. LEVODOPA/CARBIDOPA [Suspect]
     Active Substance: CARBIDOPA\LEVODOPA
     Indication: PARKINSON^S DISEASE
     Dosage: 60 MG/H OF LEVODOPA AND 13.89 MG/H OF CARBIDOPA
     Route: 065
     Dates: start: 201906
  8. LEVODOPA [Suspect]
     Active Substance: LEVODOPA
     Dosage: 42 MILLIGRAM, 5 TIMES PER DAY, INFUSION
     Route: 065

REACTIONS (6)
  - Dystonia [Unknown]
  - Dysphagia [Unknown]
  - Gait inability [Unknown]
  - Dyskinesia [Recovered/Resolved]
  - Torticollis [Recovered/Resolved]
  - Speech disorder [Recovered/Resolved]

NARRATIVE: CASE EVENT DATE: 2019
